FAERS Safety Report 17439240 (Version 1)
Quarter: 2020Q1

REPORT INFORMATION
  Report Type: Spontaneous
  Country: US (occurrence: US)
  Receive Date: 20200220
  Receipt Date: 20200220
  Transmission Date: 20200409
  Serious: Yes (Disabling, Other)
  Sender: FDA-Public Use
  Company Number: US-GLAXOSMITHKLINE-US2020AMR027937

PATIENT

DRUGS (1)
  1. INCRUSE ELLIPTA [Suspect]
     Active Substance: UMECLIDINIUM BROMIDE
     Indication: PRODUCT USED FOR UNKNOWN INDICATION
     Dosage: UNK
     Route: 065

REACTIONS (8)
  - Chronic obstructive pulmonary disease [Unknown]
  - Sepsis [Unknown]
  - Emphysema [Unknown]
  - Cholecystectomy [Unknown]
  - Spinal operation [Not Recovered/Not Resolved]
  - Pneumothorax [Unknown]
  - Gallbladder rupture [Unknown]
  - Bronchial disorder [Unknown]

NARRATIVE: CASE EVENT DATE: 2020
